FAERS Safety Report 4874563-6 (Version None)
Quarter: 2006Q1

REPORT INFORMATION
  Report Type: 
  Country: None (occurrence: None)
  Receive Date: 20060106
  Receipt Date: 20020328
  Transmission Date: 20060701
  Serious: Yes (Hospitalization)
  Sender: FDA-Public Use
  Company Number: US-ABBOTT-02P-163-0190538-00

PATIENT
  Sex: Male
  Weight: 78.996 kg

DRUGS (14)
  1. TRICOR [Suspect]
     Indication: BLOOD CHOLESTEROL INCREASED
     Route: 048
     Dates: start: 20011001, end: 20020914
  2. TRICOR [Suspect]
     Indication: BLOOD TRIGLYCERIDES INCREASED
     Route: 048
     Dates: start: 20020101, end: 20050301
  3. DIAZEPAM [Concomitant]
     Indication: INSOMNIA
     Route: 048
     Dates: start: 19720101
  4. PROPACET 100 [Concomitant]
     Indication: PAIN
     Route: 048
     Dates: start: 19820101
  5. PROPACET 100 [Concomitant]
     Indication: NECK PAIN
     Route: 048
     Dates: start: 19820101
  6. METOPROLOL SUCCINATE [Concomitant]
     Indication: ANGINA PECTORIS
     Route: 048
  7. BUPROPION HYDROCHLORIDE [Concomitant]
     Indication: DEPRESSION
     Route: 048
  8. AMOXICILLIN [Concomitant]
     Indication: PROPHYLAXIS
     Route: 048
  9. ATORVASTATIN [Concomitant]
     Indication: BLOOD CHOLESTEROL INCREASED
     Route: 048
     Dates: start: 19980101, end: 20010101
  10. OXYCODONE HCL [Concomitant]
     Route: 048
  11. COUMADIN [Concomitant]
     Indication: ANTICOAGULANT THERAPY
     Route: 048
     Dates: start: 19970101
  12. GLUCOPHAGE [Concomitant]
     Indication: DIABETES MELLITUS
     Route: 048
  13. CARVEDILOL [Concomitant]
     Indication: CORONARY ARTERY DISEASE
     Route: 048
  14. DOXAZOSIN MESYLATE [Concomitant]
     Indication: CORONARY ARTERY DISEASE
     Route: 048

REACTIONS (5)
  - ARTHRALGIA [None]
  - BALANCE DISORDER [None]
  - CARDIAC OPERATION [None]
  - ERECTILE DYSFUNCTION [None]
  - MYALGIA [None]
